FAERS Safety Report 5344939-1 (Version None)
Quarter: 2007Q2

REPORT INFORMATION
  Report Type: 
  Country: None (occurrence: None)
  Receive Date: 20070416
  Receipt Date: 20061228
  Transmission Date: 20071010
  Serious: No
  Sender: FDA-Public Use
  Company Number: 2006SP004131

PATIENT
  Age: 44 Year
  Sex: Female
  Weight: 68.0396 kg

DRUGS (12)
  1. LUNESTA [Suspect]
     Indication: INSOMNIA
     Dosage: SEE IMAGE
     Route: 048
  2. AMITRIPTYLINE HCL [Concomitant]
  3. CRESTOR [Concomitant]
  4. PHENYTOIN [Concomitant]
  5. DURAGESIC-100 [Concomitant]
  6. EFFEXOR [Concomitant]
  7. LISINOPRIL [Concomitant]
  8. METOPROLOL SUCCINATE [Concomitant]
  9. PLAVIX [Concomitant]
  10. PREMARIN [Concomitant]
  11. TORSEMIDE [Concomitant]
  12. ZETIA [Concomitant]

REACTIONS (1)
  - INSOMNIA [None]
